FAERS Safety Report 4751331-7 (Version None)
Quarter: 2005Q3

REPORT INFORMATION
  Report Type: 
  Country: None (occurrence: None)
  Receive Date: 20050822
  Receipt Date: 20050808
  Transmission Date: 20060218
  Serious: Yes (Other)
  Sender: FDA-Public Use
  Company Number: 2005112508

PATIENT
  Age: 60 Year
  Sex: Male
  Weight: 70.3075 kg

DRUGS (7)
  1. VIAGRA [Suspect]
     Indication: ERECTILE DYSFUNCTION
     Dosage: 50 MG (50 MG,AS NECESSARY)
     Dates: start: 20000101
  2. LUPRON [Suspect]
     Indication: PROSTATE CANCER
     Dates: start: 20001101, end: 20001101
  3. HYTRIN [Concomitant]
  4. ACYCLOVIR [Concomitant]
  5. PRAVACHOL [Concomitant]
  6. ASPIRIN [Concomitant]
  7. CALCIUM GLUCONATE [Concomitant]

REACTIONS (7)
  - FEELING HOT [None]
  - HEADACHE [None]
  - INAPPROPRIATE SCHEDULE OF DRUG ADMINISTRATION [None]
  - LIBIDO DECREASED [None]
  - NASAL CONGESTION [None]
  - OCULAR HYPERAEMIA [None]
  - PROSTATE CANCER STAGE I [None]
